FAERS Safety Report 10588994 (Version 1)
Quarter: 2014Q4

REPORT INFORMATION
  Report Type: Spontaneous
  Country: US (occurrence: US)
  Receive Date: 20141117
  Receipt Date: 20141117
  Transmission Date: 20150529
  Serious: Yes (Other)
  Sender: FDA-Public Use
  Company Number: US-AMGEN-USASP2014088349

PATIENT
  Age: 26 Year
  Sex: Male

DRUGS (2)
  1. ENBREL [Suspect]
     Active Substance: ETANERCEPT
     Indication: ANKYLOSING SPONDYLITIS
     Dosage: 50 MG, QWK
     Route: 065
     Dates: start: 201406, end: 2014
  2. PREDNISONE. [Concomitant]
     Active Substance: PREDNISONE
     Dosage: 60 MG, QD

REACTIONS (5)
  - Haemolytic anaemia [Unknown]
  - Intravascular haemolysis [Unknown]
  - Blood bilirubin abnormal [Unknown]
  - Platelet count decreased [Unknown]
  - Complement factor decreased [Unknown]

NARRATIVE: CASE EVENT DATE: 2014
